FAERS Safety Report 7724575-X (Version None)
Quarter: 2011Q3

REPORT INFORMATION
  Report Type: 
  Country: None (occurrence: None)
  Receive Date: 20110901
  Receipt Date: 20110830
  Transmission Date: 20111222
  Serious: Yes (Death, Other)
  Sender: FDA-Public Use
  Company Number: US-CEPHALON-2011004556

PATIENT
  Sex: Female

DRUGS (3)
  1. FENTORA [Suspect]
     Indication: BREAKTHROUGH PAIN
     Route: 002
     Dates: start: 20080901, end: 20081017
  2. MORPHINE [Concomitant]
     Indication: PAIN
     Route: 048
  3. MORPHINE [Concomitant]
     Route: 048

REACTIONS (2)
  - BREAST CANCER METASTATIC [None]
  - CIRCUMSTANCE OR INFORMATION CAPABLE OF LEADING TO MEDICATION ERROR [None]
